FAERS Safety Report 16601521 (Version 1)
Quarter: 2019Q3

REPORT INFORMATION
  Report Type: Spontaneous
  Country: US (occurrence: US)
  Receive Date: 20190719
  Receipt Date: 20190719
  Transmission Date: 20191004
  Serious: Yes (Hospitalization, Other)
  Sender: FDA-Public Use
  Company Number: US-ELI_LILLY_AND_COMPANY-US201907005437

PATIENT
  Sex: Female

DRUGS (2)
  1. LANTUS [Concomitant]
     Active Substance: INSULIN GLARGINE
     Indication: DIABETES MELLITUS
  2. HUMALOG KWIKPEN [Suspect]
     Active Substance: INSULIN LISPRO
     Indication: TYPE 2 DIABETES MELLITUS
     Dosage: 40 U, PRN
     Route: 058
     Dates: start: 1994

REACTIONS (12)
  - Fibromyalgia [Not Recovered/Not Resolved]
  - Oedema [Unknown]
  - Memory impairment [Unknown]
  - Hyperhidrosis [Unknown]
  - Dyspnoea [Unknown]
  - Blood glucose decreased [Unknown]
  - Diabetes mellitus [Not Recovered/Not Resolved]
  - Cardiac failure congestive [Unknown]
  - Atrial fibrillation [Not Recovered/Not Resolved]
  - Palpitations [Not Recovered/Not Resolved]
  - Blood glucose increased [Unknown]
  - Wrong technique in product usage process [Unknown]
